FAERS Safety Report 14617644 (Version 23)
Quarter: 2020Q4

REPORT INFORMATION
  Report Type: Other
  Country: CA (occurrence: CA)
  Receive Date: 20180309
  Receipt Date: 20201222
  Transmission Date: 20210113
  Serious: Yes (Other)
  Sender: FDA-Public Use
  Company Number: CA-ROCHE-2086120

PATIENT
  Age: 44 Year
  Sex: Female

DRUGS (12)
  1. WELLBUTRIN [Suspect]
     Active Substance: BUPROPION HYDROCHLORIDE
     Indication: ANXIETY
     Route: 065
     Dates: start: 201909
  2. EFFEXOR [Concomitant]
     Active Substance: VENLAFAXINE HYDROCHLORIDE
     Dosage: 125 MG IN THE MORNING AND 75 MG AT NIG
  3. CLONAZEPAM. [Concomitant]
     Active Substance: CLONAZEPAM
  4. TRAZODONE [Concomitant]
     Active Substance: TRAZODONE HYDROCHLORIDE
     Indication: ANXIETY
  5. OCREVUS [Suspect]
     Active Substance: OCRELIZUMAB
     Indication: RELAPSING-REMITTING MULTIPLE SCLEROSIS
     Dosage: 2 INFUSIONS( 300 MG IV) COMPLETED, 300 MG EVERY 2 WEEKS ( 2 DOSES) THEN 600 MG Q 6MNT,
     Route: 042
     Dates: start: 20171215, end: 20190718
  6. PREDNISONE. [Suspect]
     Active Substance: PREDNISONE
     Indication: PRODUCT USED FOR UNKNOWN INDICATION
     Route: 065
  7. DEXEDRINE [Concomitant]
     Active Substance: DEXTROAMPHETAMINE SULFATE
     Dates: start: 201909
  8. ZITHROMAX [Concomitant]
     Active Substance: AZITHROMYCIN DIHYDRATE
     Dates: start: 20200521
  9. CELEXA [Concomitant]
     Active Substance: CITALOPRAM HYDROBROMIDE
     Indication: ANXIETY DISORDER
  10. CELEXA [Concomitant]
     Active Substance: CITALOPRAM HYDROBROMIDE
     Indication: DEPRESSION
     Route: 048
     Dates: start: 2012
  11. DULCOLAX STOOL SOFTENER [Concomitant]
     Active Substance: DOCUSATE SODIUM
  12. ZENHALE [Concomitant]
     Active Substance: FORMOTEROL FUMARATE\MOMETASONE FUROATE

REACTIONS (38)
  - Sinus headache [Not Recovered/Not Resolved]
  - Viral infection [Recovered/Resolved]
  - Rash [Not Recovered/Not Resolved]
  - Sinusitis [Recovered/Resolved]
  - Muscular weakness [Not Recovered/Not Resolved]
  - Musculoskeletal stiffness [Unknown]
  - Blood cholesterol increased [Unknown]
  - Asthenia [Recovering/Resolving]
  - Fatigue [Not Recovered/Not Resolved]
  - Ear pain [Unknown]
  - Poor quality sleep [Recovered/Resolved]
  - Bronchitis [Unknown]
  - Headache [Not Recovered/Not Resolved]
  - Rhinorrhoea [Not Recovered/Not Resolved]
  - Anxiety [Not Recovered/Not Resolved]
  - Insomnia [Recovered/Resolved]
  - Gait disturbance [Unknown]
  - Condition aggravated [Not Recovered/Not Resolved]
  - Peripheral coldness [Unknown]
  - Decreased appetite [Not Recovered/Not Resolved]
  - Pharyngitis [Recovered/Resolved]
  - Asthenia [Not Recovered/Not Resolved]
  - Therapeutic response decreased [Unknown]
  - Increased bronchial secretion [Recovered/Resolved]
  - Asthenia [Not Recovered/Not Resolved]
  - Pain [Unknown]
  - Pyrexia [Recovered/Resolved]
  - Sinusitis [Not Recovered/Not Resolved]
  - Lower respiratory tract infection [Recovered/Resolved]
  - Pneumonia [Recovered/Resolved]
  - Cough [Recovered/Resolved]
  - Gait disturbance [Not Recovered/Not Resolved]
  - Hypothyroidism [Recovered/Resolved]
  - Pulmonary pain [Recovered/Resolved]
  - Abdominal discomfort [Not Recovered/Not Resolved]
  - Headache [Unknown]
  - Balance disorder [Not Recovered/Not Resolved]
  - Ear infection [Recovered/Resolved]

NARRATIVE: CASE EVENT DATE: 20171215
